FAERS Safety Report 4515026-7 (Version None)
Quarter: 2004Q4

REPORT INFORMATION
  Report Type: 
  Country: None (occurrence: None)
  Receive Date: 20041129
  Receipt Date: 20041129
  Transmission Date: 20050328
  Serious: Yes (Life-Threatening)
  Sender: FDA-Public Use
  Company Number: None

PATIENT
  Age: 54 Year
  Sex: Male
  Weight: 68.0396 kg

DRUGS (5)
  1. ALEVE [Suspect]
     Indication: NERVE COMPRESSION
     Dosage: 660 MG BID ORAL
     Route: 048
     Dates: start: 20041108, end: 20041110
  2. INGUINAL NERVE BLOCK [Concomitant]
  3. LIDOCAINE [Concomitant]
  4. DECADRON [Concomitant]
  5. PREDNISONE [Concomitant]

REACTIONS (1)
  - HEPATITIS FULMINANT [None]
